FAERS Safety Report 13427442 (Version 2)
Quarter: 2017Q3

REPORT INFORMATION
  Report Type: Spontaneous
  Country: JP (occurrence: JP)
  Receive Date: 20170411
  Receipt Date: 20170706
  Transmission Date: 20171127
  Serious: Yes (Death, Life-Threatening, Hospitalization)
  Sender: FDA-Public Use
  Company Number: JP-ELI_LILLY_AND_COMPANY-JP201704002392

PATIENT
  Age: 59 Year
  Sex: Female

DRUGS (4)
  1. CORTRIL [Concomitant]
     Active Substance: HYDROCORTISONE
     Indication: HYPOPITUITARISM
     Dosage: 10 MG, UNKNOWN
     Route: 048
     Dates: start: 200903
  2. THYRADIN-S [Concomitant]
     Active Substance: LEVOTHYROXINE
     Indication: HYPOPITUITARISM
     Dosage: 75 MG, UNKNOWN
     Route: 048
     Dates: start: 200903
  3. CANDESARTAN. [Concomitant]
     Active Substance: CANDESARTAN
     Indication: HYPERTENSION
     Dosage: 4 MG, UNKNOWN
     Route: 048
     Dates: start: 20170209
  4. HUMATROPE [Suspect]
     Active Substance: SOMATROPIN
     Indication: HYPOPITUITARISM
     Dosage: UNK
     Route: 058
     Dates: start: 201007

REACTIONS (3)
  - Sepsis [Not Recovered/Not Resolved]
  - Adrenal insufficiency [Fatal]
  - Influenza [Not Recovered/Not Resolved]

NARRATIVE: CASE EVENT DATE: 20170302
